FAERS Safety Report 14123386 (Version 1)
Quarter: 2017Q4

REPORT INFORMATION
  Report Type: Spontaneous
  Country: US (occurrence: US)
  Receive Date: 20171025
  Receipt Date: 20171025
  Transmission Date: 20180321
  Serious: No
  Sender: FDA-Public Use
  Company Number: US-KERYX BIOPHARMACEUTICALS INC.-2017US003063

PATIENT
  Age: 32 Year
  Sex: Male
  Weight: 80.7 kg

DRUGS (5)
  1. LIQUACEL [Concomitant]
     Dosage: 1 OUNCE, QOD
     Route: 048
     Dates: start: 20160505
  2. RENVELA [Concomitant]
     Active Substance: SEVELAMER CARBONATE
     Dosage: 800 MG, (2 TABLETS) TID WITH MEALS
     Route: 048
     Dates: start: 20170711
  3. CALCITROL                          /00508501/ [Concomitant]
     Active Substance: CALCIUM CARBONATE\ERGOCALCIFEROL\RETINOL
     Dosage: 0.5 MICRO-G, QD
     Route: 048
     Dates: start: 20170316
  4. DIALYVITE WITH ZINC [Concomitant]
     Active Substance: ASCORBIC ACID\BIOTIN\CALCIUM PANTOTHENATE\COBALAMIN\FOLIC ACID\NIACINAMIDE\PYRIDOXINE HYDROCHLORIDE\RIBOFLAVIN\THIAMINE MONONITRATE\ZINC CITRATE
     Dosage: 0.8-2,000 MG, QD
     Route: 048
     Dates: start: 20160919
  5. AURYXIA [Suspect]
     Active Substance: TETRAFERRIC TRICITRATE DECAHYDRATE
     Indication: BLOOD PHOSPHORUS INCREASED
     Dosage: 6 G (6 TABLETS), QD
     Route: 048
     Dates: start: 20170303, end: 20170711

REACTIONS (2)
  - Serum ferritin increased [Unknown]
  - Liver function test increased [Recovered/Resolved]

NARRATIVE: CASE EVENT DATE: 201707
